FAERS Safety Report 7659623-9 (Version None)
Quarter: 2011Q3

REPORT INFORMATION
  Report Type: 
  Country: None (occurrence: None)
  Receive Date: 20110805
  Receipt Date: 20110729
  Transmission Date: 20111222
  Serious: Yes (Hospitalization)
  Sender: FDA-Public Use
  Company Number: JP-MERCK-1107USA03317

PATIENT
  Age: 82 Year
  Sex: Male

DRUGS (5)
  1. CRESTOR [Suspect]
     Indication: HYPERLIPIDAEMIA
     Route: 048
     Dates: start: 20070501
  2. AMARYL [Concomitant]
     Indication: DIABETES MELLITUS
     Dosage: DAILY DOSAGE UNKNOWN
     Route: 048
  3. DIART [Concomitant]
     Dosage: DAILY DOSAGE UNKNOWN
     Route: 048
  4. TAMSULOSIN HCL [Concomitant]
     Dosage: DAILY DOSAGE UNKNOWN
     Route: 048
  5. JANUVIA [Suspect]
     Indication: DIABETES MELLITUS
     Route: 048
     Dates: start: 20110326, end: 20110718

REACTIONS (1)
  - INTERSTITIAL LUNG DISEASE [None]
